FAERS Safety Report 18651511 (Version 2)
Quarter: 2022Q4

REPORT INFORMATION
  Report Type: Spontaneous
  Country: FI (occurrence: FI)
  Receive Date: 20201223
  Receipt Date: 20221128
  Transmission Date: 20230113
  Serious: Yes (Other)
  Sender: FDA-Public Use
  Company Number: FI-EMA-DD-20200722-KUMARVN_P-161842

PATIENT
  Age: 77 Year
  Sex: Female

DRUGS (10)
  1. AMIKACIN SULFATE [Suspect]
     Active Substance: AMIKACIN SULFATE
     Indication: Product used for unknown indication
     Dosage: UNK
     Route: 065
     Dates: start: 2019
  2. TOBI PODHALER [Suspect]
     Active Substance: TOBRAMYCIN
     Indication: Pseudomonas infection
     Dosage: 4 DOSAGE FORM BID,INHALED TWICE A DAY FOR 28 DAYS, THEN A 28-DAY BREAK
     Route: 055
     Dates: start: 20190425
  3. TOBI PODHALER [Suspect]
     Active Substance: TOBRAMYCIN
     Indication: Pneumonia
     Dosage: UNK
     Dates: start: 2020, end: 20200708
  4. TOBI PODHALER [Suspect]
     Active Substance: TOBRAMYCIN
     Dosage: 4 WEEKS EVERY MORNING AND EVERY EVENING, THEN 4 THEN WEEKS BREAK AND NEXT 4 WEEKS EVERY MORNING
     Route: 055
     Dates: start: 20200604
  5. TOBI PODHALER [Suspect]
     Active Substance: TOBRAMYCIN
     Dosage: 28 MILLIGRAM, BID
     Route: 055
     Dates: start: 20200807
  6. TOBI PODHALER [Suspect]
     Active Substance: TOBRAMYCIN
     Dosage: 4X4 TWICE A DAY
     Route: 055
     Dates: start: 20200610
  7. AZTREONAM [Suspect]
     Active Substance: AZTREONAM
     Indication: Product used for unknown indication
     Route: 065
     Dates: start: 2020
  8. NYSTATIN [Concomitant]
     Active Substance: NYSTATIN
     Indication: Product used for unknown indication
     Dosage: 1 MILLIGRAM,  4 TIMES A DAY FOR A MONTH
     Dates: start: 20190425
  9. DOXYCYCLINE HYCLATE [Concomitant]
     Active Substance: DOXYCYCLINE HYCLATE
     Indication: Product used for unknown indication
     Dosage: 150 MILLIGRAM, QD
     Route: 048
     Dates: start: 20200131
  10. CIPROFLOXACIN [Concomitant]
     Active Substance: CIPROFLOXACIN
     Indication: Product used for unknown indication
     Dosage: 250 MILLIGRAM, BID FOR 14 DAYS
     Route: 065
     Dates: start: 20200430

REACTIONS (10)
  - Disease recurrence [Unknown]
  - Lung disorder [Unknown]
  - Purulent discharge [Unknown]
  - Sputum abnormal [Unknown]
  - Sputum increased [Unknown]
  - Sputum discoloured [Unknown]
  - Cough [Unknown]
  - Haemoptysis [Unknown]
  - Drug resistance [Unknown]
  - Product use issue [Unknown]

NARRATIVE: CASE EVENT DATE: 20200101
